FAERS Safety Report 25706438 (Version 1)
Quarter: 2025Q3

REPORT INFORMATION
  Report Type: Other
  Country: GB (occurrence: GB)
  Receive Date: 20250820
  Receipt Date: 20250820
  Transmission Date: 20251021
  Serious: Yes (Hospitalization, Other)
  Sender: MACLEODS
  Company Number: None

PATIENT

DRUGS (1)
  1. LEVOFLOXACIN [Suspect]
     Active Substance: LEVOFLOXACIN
     Indication: Prophylaxis
     Dosage: 500 MG OD
     Route: 065
     Dates: start: 20250718, end: 20250801

REACTIONS (2)
  - Medication error [Unknown]
  - Tendon rupture [Recovering/Resolving]

NARRATIVE: CASE EVENT DATE: 20250801
